FAERS Safety Report 7595642-9 (Version None)
Quarter: 2011Q3

REPORT INFORMATION
  Report Type: 
  Country: None (occurrence: None)
  Receive Date: 20110707
  Receipt Date: 20110627
  Transmission Date: 20111222
  Serious: Yes (Other)
  Sender: FDA-Public Use
  Company Number: PHHY2011JP57495

PATIENT
  Age: 74 Year
  Sex: Female

DRUGS (2)
  1. PACLITAXEL [Suspect]
     Indication: LUNG ADENOCARCINOMA STAGE III
     Dosage: UNK
  2. CARBOPLATIN [Suspect]
     Indication: LUNG ADENOCARCINOMA STAGE III
     Dosage: UNK

REACTIONS (2)
  - PNEUMOTHORAX [None]
  - METASTASES TO BONE [None]
